FAERS Safety Report 10089040 (Version 1)
Quarter: 2014Q2

REPORT INFORMATION
  Report Type: Spontaneous
  Country: US (occurrence: None)
  Receive Date: 20140418
  Receipt Date: 20140418
  Transmission Date: 20141212
  Serious: No
  Sender: FDA-Public Use
  Company Number: None

PATIENT
  Age: 71 Year
  Sex: Female

DRUGS (5)
  1. LEXAPRO [Suspect]
     Indication: DEPRESSION
     Dosage: 1 PILL
     Route: 048
     Dates: start: 20140221, end: 20140221
  2. PRAZOSIN [Concomitant]
  3. ASPIRIN [Concomitant]
  4. SIMVASTATIN (ZOCOR) [Concomitant]
  5. MULTVITAMINS [Concomitant]

REACTIONS (8)
  - Diarrhoea [None]
  - Dizziness [None]
  - Nausea [None]
  - Headache [None]
  - Nightmare [None]
  - Disorientation [None]
  - Fall [None]
  - Contusion [None]
